FAERS Safety Report 6544156-3 (Version None)
Quarter: 2010Q1

REPORT INFORMATION
  Report Type: 
  Country: None (occurrence: None)
  Receive Date: 20100120
  Receipt Date: 20090812
  Transmission Date: 20100710
  Serious: No
  Sender: FDA-Public Use
  Company Number: US-ALLERGAN-0911194US

PATIENT
  Age: 53 Year
  Sex: Female

DRUGS (1)
  1. PRED FORTE [Suspect]
     Indication: IRITIS
     Dosage: 1 GTT, Q2HR
     Route: 047

REACTIONS (4)
  - ABNORMAL SENSATION IN EYE [None]
  - EYE PAIN [None]
  - PHOTOPHOBIA [None]
  - VISION BLURRED [None]
